FAERS Safety Report 25235013 (Version 1)
Quarter: 2025Q2

REPORT INFORMATION
  Report Type: Other
  Country: CA (occurrence: CA)
  Receive Date: 20250424
  Receipt Date: 20250424
  Transmission Date: 20250717
  Serious: Yes (Death)
  Sender: PFIZER
  Company Number: CA-PFIZER INC-202500085438

PATIENT
  Age: 40 Year
  Sex: Male

DRUGS (7)
  1. HYDROMORPHONE HYDROCHLORIDE [Suspect]
     Active Substance: HYDROMORPHONE HYDROCHLORIDE
  2. AMPHETAMINE [Suspect]
     Active Substance: AMPHETAMINE
  3. CAFFEINE [Suspect]
     Active Substance: CAFFEINE
  4. ETIZOLAM [Suspect]
     Active Substance: ETIZOLAM
  5. FENTANYL [Suspect]
     Active Substance: FENTANYL
  6. METHAMPHETAMINE [Suspect]
     Active Substance: METHAMPHETAMINE
  7. MORPHINE [Suspect]
     Active Substance: MORPHINE

REACTIONS (1)
  - Toxicity to various agents [Fatal]
